FAERS Safety Report 8374547-X (Version None)
Quarter: 2012Q2

REPORT INFORMATION
  Report Type: 
  Country: None (occurrence: None)
  Receive Date: 20120521
  Receipt Date: 20120515
  Transmission Date: 20120825
  Serious: No
  Sender: FDA-Public Use
  Company Number: US-PFIZER INC-2012118312

PATIENT
  Sex: Male
  Weight: 12.245 kg

DRUGS (2)
  1. VIAGRA [Suspect]
     Indication: INTRACRANIAL ANEURYSM
     Dosage: UNK
     Dates: start: 20120101
  2. VIAGRA [Suspect]
     Indication: MASS

REACTIONS (1)
  - THERAPEUTIC RESPONSE UNEXPECTED [None]
